FAERS Safety Report 8265565 (Version 2)
Quarter: 2013Q1

REPORT INFORMATION
  Report Type: Spontaneous
  Country: US (occurrence: US)
  Receive Date: 20111128
  Receipt Date: 20130104
  Transmission Date: 20140127
  Serious: Yes (Other)
  Sender: FDA-Public Use
  Company Number: US-ROCHE-783738

PATIENT
  Age: 24 None
  Sex: Male
  Weight: 90.8 kg

DRUGS (1)
  1. ACCUTANE [Suspect]
     Indication: ACNE
     Route: 048
     Dates: start: 20000106, end: 20000623

REACTIONS (4)
  - Inflammatory bowel disease [Unknown]
  - Colitis ulcerative [Unknown]
  - Emotional distress [Unknown]
  - Large intestine polyp [Unknown]
